FAERS Safety Report 12336038 (Version 3)
Quarter: 2016Q3

REPORT INFORMATION
  Report Type: Spontaneous
  Country: None (occurrence: DK)
  Receive Date: 20160505
  Receipt Date: 20160816
  Transmission Date: 20161109
  Serious: Yes (Other)
  Sender: FDA-Public Use
  Company Number: DK-MERCK KGAA-1051454

PATIENT

DRUGS (1)
  1. NOVOTHYROX [Suspect]
     Active Substance: LEVOTHYROXINE SODIUM

REACTIONS (6)
  - Musculoskeletal discomfort [None]
  - Haematemesis [None]
  - Tenderness [None]
  - Epistaxis [None]
  - Malaise [None]
  - Pain [None]
